FAERS Safety Report 9347132 (Version 1)
Quarter: 2013Q2

REPORT INFORMATION
  Report Type: Report from Study
  Country: JP (occurrence: JP)
  Receive Date: 20130613
  Receipt Date: 20130613
  Transmission Date: 20140414
  Serious: Yes (Other)
  Sender: FDA-Public Use
  Company Number: JP-009507513-1305JPN005647

PATIENT
  Age: 38 Year
  Sex: Female

DRUGS (2)
  1. GANIREST SUBCUTANEOUS 0.25MG SYRINGE [Suspect]
     Route: 058
     Dates: start: 20100509, end: 20100511
  2. FOLLISTIM INJECTION 300IU CARTRIDGES [Suspect]
     Route: 058

REACTIONS (2)
  - Abortion missed [Recovering/Resolving]
  - Pregnancy [None]
